FAERS Safety Report 4725763-7 (Version None)
Quarter: 2005Q3

REPORT INFORMATION
  Report Type: 
  Country: None (occurrence: None)
  Receive Date: 20050727
  Receipt Date: 20031023
  Transmission Date: 20060218
  Serious: Yes (Hospitalization, Other)
  Sender: FDA-Public Use
  Company Number: 200319221US

PATIENT
  Sex: Male

DRUGS (3)
  1. ARAVA [Suspect]
     Indication: RHEUMATOID ARTHRITIS
     Route: 048
     Dates: start: 20030901, end: 20030919
  2. VASOTEC RPD [Concomitant]
     Dosage: DOSE: UNKNOWN
  3. CHOLESTYRAMINE [Concomitant]
     Dosage: DOSE: UNKNOWN

REACTIONS (12)
  - ATRIAL FIBRILLATION [None]
  - BRONCHITIS [None]
  - DIFFICULTY IN WALKING [None]
  - IMMOBILE [None]
  - INTERSTITIAL LUNG DISEASE [None]
  - IRRITABILITY [None]
  - JOINT SWELLING [None]
  - MULTI-ORGAN FAILURE [None]
  - OEDEMA [None]
  - POLLAKIURIA [None]
  - SKIN DISCOLOURATION [None]
  - WEIGHT DECREASED [None]
